FAERS Safety Report 12636797 (Version 3)
Quarter: 2016Q3

REPORT INFORMATION
  Report Type: Report from Study
  Country: FR (occurrence: FR)
  Receive Date: 20160809
  Receipt Date: 20160919
  Transmission Date: 20161109
  Serious: Yes (Other)
  Sender: FDA-Public Use
  Company Number: FR-CELGENEUS-FRA-2016077552

PATIENT
  Age: 24 Year
  Sex: Female
  Weight: 64.5 kg

DRUGS (2)
  1. CC-10004 [Suspect]
     Active Substance: APREMILAST
     Dosage: 5 MILLIGRAM
     Route: 048
     Dates: start: 20160810
  2. CC-10004 [Suspect]
     Active Substance: APREMILAST
     Indication: BEHCET^S SYNDROME
     Route: 048
     Dates: start: 20160229, end: 20160728

REACTIONS (1)
  - Herpes zoster [Recovered/Resolved]

NARRATIVE: CASE EVENT DATE: 20160723
